FAERS Safety Report 24465455 (Version 1)
Quarter: 2024Q4

REPORT INFORMATION
  Report Type: Report from Study
  Country: US (occurrence: US)
  Receive Date: 20241018
  Receipt Date: 20241018
  Transmission Date: 20250115
  Serious: No
  Sender: ROCHE
  Company Number: US-ROCHE-3523691

PATIENT

DRUGS (1)
  1. XOLAIR [Suspect]
     Active Substance: OMALIZUMAB
     Indication: Product used for unknown indication
     Dosage: STARTED XOLAIR (300MG) IN OCT.
     Route: 065

REACTIONS (6)
  - Diarrhoea [Unknown]
  - Mast cell activation syndrome [Unknown]
  - Abdominal distension [Unknown]
  - Vomiting [Unknown]
  - Headache [Unknown]
  - Off label use [Unknown]
